FAERS Safety Report 5025593-5 (Version None)
Quarter: 2006Q2

REPORT INFORMATION
  Report Type: 
  Country: None (occurrence: None)
  Receive Date: 20060614
  Receipt Date: 20060605
  Transmission Date: 20061013
  Serious: Yes (Hospitalization)
  Sender: FDA-Public Use
  Company Number: 2006CG00993

PATIENT
  Age: 95 Year
  Sex: Female
  Weight: 37 kg

DRUGS (4)
  1. ZESTRIL [Suspect]
     Indication: ESSENTIAL HYPERTENSION
     Route: 048
     Dates: end: 20060210
  2. LASILIX [Concomitant]
     Route: 048
  3. COLCHICINE [Concomitant]
     Route: 048
  4. TARDYFERON [Concomitant]
     Route: 048

REACTIONS (7)
  - ANAEMIA VITAMIN B12 DEFICIENCY [None]
  - BLOOD CREATININE INCREASED [None]
  - FALL [None]
  - HYPERCALCAEMIA [None]
  - IRON DEFICIENCY ANAEMIA [None]
  - SYNCOPE VASOVAGAL [None]
  - THROMBOCYTHAEMIA [None]
